FAERS Safety Report 15900782 (Version 6)
Quarter: 2022Q3

REPORT INFORMATION
  Report Type: Other
  Country: US (occurrence: None)
  Receive Date: 20190201
  Receipt Date: 20220919
  Transmission Date: 20221026
  Serious: Yes (Hospitalization, Disabling, Other)
  Sender: FDA-Public Use
  Company Number: US-ROCHE-2213782

PATIENT
  Age: 48 Year
  Sex: Female
  Weight: 318.25 kg

DRUGS (18)
  1. OCREVUS [Suspect]
     Active Substance: OCRELIZUMAB
     Indication: Relapsing multiple sclerosis
     Dosage: 1ST 1/2 DOSE 17-OCT-2018; 2ND DOSE 06-NOV-2018 ;ONGOING: YES
     Route: 042
     Dates: start: 20181017
  2. OCREVUS [Suspect]
     Active Substance: OCRELIZUMAB
     Indication: Multiple sclerosis
     Dosage: 2ND DOSE
     Route: 042
     Dates: start: 20181106
  3. OCREVUS [Suspect]
     Active Substance: OCRELIZUMAB
     Dosage: A/O
     Route: 042
     Dates: start: 2021, end: 2021
  4. CYMBALTA [Concomitant]
     Active Substance: DULOXETINE HYDROCHLORIDE
     Route: 048
  5. COLACE [Concomitant]
     Active Substance: DOCUSATE SODIUM
     Route: 048
  6. TRAMADOL [Concomitant]
     Active Substance: TRAMADOL
     Route: 048
  7. VITAMIN D3 [Concomitant]
     Active Substance: CHOLECALCIFEROL
     Dosage: 2000 UNIT
     Route: 048
  8. LYRICA [Concomitant]
     Active Substance: PREGABALIN
     Route: 048
  9. METHADONE [Concomitant]
     Active Substance: METHADONE HYDROCHLORIDE
     Route: 048
  10. DILAUDID [Concomitant]
     Active Substance: HYDROMORPHONE HYDROCHLORIDE
     Route: 048
  11. RELAFEN [Concomitant]
     Active Substance: NABUMETONE
     Route: 048
  12. LISINOPRIL [Concomitant]
     Active Substance: LISINOPRIL
     Route: 048
  13. CAMILA [Concomitant]
     Active Substance: NORETHINDRONE
     Route: 048
  14. ACTHAR [Concomitant]
     Active Substance: CORTICOTROPIN
     Dosage: 80 UNITS
  15. ADDERALL [Concomitant]
     Active Substance: AMPHETAMINE ASPARTATE\AMPHETAMINE SULFATE\DEXTROAMPHETAMINE SACCHARATE\DEXTROAMPHETAMINE SULFATE
     Dates: start: 20130114
  16. CLONIDINE [Concomitant]
     Active Substance: CLONIDINE
  17. LEXAPRO [Concomitant]
     Active Substance: ESCITALOPRAM OXALATE
  18. ULTRAM [Concomitant]
     Active Substance: TRAMADOL HYDROCHLORIDE

REACTIONS (11)
  - Fatigue [Recovering/Resolving]
  - Back pain [Recovering/Resolving]
  - Limb discomfort [Unknown]
  - Stress [Unknown]
  - Fall [Unknown]
  - Optic neuritis [Not Recovered/Not Resolved]
  - Mobility decreased [Not Recovered/Not Resolved]
  - Decreased appetite [Recovered/Resolved]
  - Headache [Recovered/Resolved]
  - Dysstasia [Recovered/Resolved]
  - Bone disorder [Recovered/Resolved]

NARRATIVE: CASE EVENT DATE: 20181025
